FAERS Safety Report 7888651-3 (Version None)
Quarter: 2011Q4

REPORT INFORMATION
  Report Type: 
  Country: None (occurrence: None)
  Receive Date: 20111103
  Receipt Date: 20111031
  Transmission Date: 20120403
  Serious: Yes (Death, Other)
  Sender: FDA-Public Use
  Company Number: US-TEVA-307479USA

PATIENT
  Age: 68 Year
  Sex: Male

DRUGS (6)
  1. COLCHICINE [Interacting]
     Route: 042
  2. AMIODARONE HCL [Interacting]
     Route: 042
  3. AMIODARONE HCL [Interacting]
     Dosage: 1200 MILLIGRAM;
  4. TACROLIMUS [Suspect]
  5. COLCHICINE [Interacting]
     Dosage: Q 2-4H
     Route: 048
  6. DILTIAZEM HCL [Suspect]

REACTIONS (4)
  - TOXICITY TO VARIOUS AGENTS [None]
  - CARDIAC ARREST [None]
  - RENAL FAILURE [None]
  - THROMBOCYTOPENIA [None]
